FAERS Safety Report 23396650 (Version 1)
Quarter: 2024Q1

REPORT INFORMATION
  Report Type: Spontaneous
  Country: CN (occurrence: CN)
  Receive Date: 20240112
  Receipt Date: 20240112
  Transmission Date: 20240410
  Serious: Yes (Hospitalization, Other)
  Sender: FDA-Public Use
  Company Number: CN-ABBVIE-5579510

PATIENT
  Age: 77 Year
  Sex: Female
  Weight: 50 kg

DRUGS (6)
  1. UPADACITINIB [Suspect]
     Active Substance: UPADACITINIB
     Indication: Rheumatoid arthritis
     Dosage: 15 MILLIGRAM?LAST ADMIN DATE-2023
     Route: 048
     Dates: start: 20230422
  2. UPADACITINIB [Suspect]
     Active Substance: UPADACITINIB
     Indication: Rheumatoid arthritis
     Dosage: 15 MILLIGRAM
     Route: 048
     Dates: start: 20231113, end: 20231128
  3. HYDROXYCHLOROQUINE [Concomitant]
     Active Substance: HYDROXYCHLOROQUINE
     Indication: Rheumatoid arthritis
     Dosage: 400 MILLIGRAM; 200 MG BID
     Dates: start: 20230822, end: 20231128
  4. METHYLPREDNISOLONE [Concomitant]
     Active Substance: METHYLPREDNISOLONE
     Indication: Rheumatoid arthritis
     Dosage: 6 MILLIGRAM;
     Dates: start: 20230822, end: 20231128
  5. METHYLPREDNISOLONE [Concomitant]
     Active Substance: METHYLPREDNISOLONE
     Indication: Rheumatoid arthritis
     Dosage: 8 MG QD; REDUCED
     Dates: start: 20230620, end: 20230822
  6. PREDNISONE ACETATE [Concomitant]
     Active Substance: PREDNISONE ACETATE
     Indication: Product used for unknown indication

REACTIONS (22)
  - Pneumonia [Recovering/Resolving]
  - Herpes zoster [Recovering/Resolving]
  - Respiratory failure [Unknown]
  - Neck pain [Unknown]
  - Fatigue [Unknown]
  - Chest pain [Unknown]
  - Dizziness [Unknown]
  - Nausea [Unknown]
  - Vomiting [Unknown]
  - Mental disorder [Unknown]
  - Cough [Unknown]
  - Increased viscosity of bronchial secretion [Unknown]
  - Sputum discoloured [Unknown]
  - Swelling [Unknown]
  - Intracranial infection [Unknown]
  - Herpes virus infection [Unknown]
  - Herpes virus infection [Unknown]
  - Respiration abnormal [Unknown]
  - Rheumatoid arthritis [Unknown]
  - Herpes virus infection [Unknown]
  - Pulmonary oedema [Unknown]
  - Wheezing [Unknown]

NARRATIVE: CASE EVENT DATE: 20231124
